FAERS Safety Report 21961992 (Version 2)
Quarter: 2023Q1

REPORT INFORMATION
  Report Type: Spontaneous
  Country: FR (occurrence: FR)
  Receive Date: 20230207
  Receipt Date: 20230227
  Transmission Date: 20230417
  Serious: No
  Sender: FDA-Public Use
  Company Number: FR-JNJFOC-20230203954

PATIENT

DRUGS (1)
  1. NICORETTE [Suspect]
     Active Substance: NICOTINE
     Indication: Product used for unknown indication
     Dosage: UNK, 1 BOX OF 105 GUMS EVERY WEEK FOR 15 YEARS
     Route: 065

REACTIONS (2)
  - Nicotine dependence [Unknown]
  - Intentional product use issue [Unknown]
